FAERS Safety Report 13892864 (Version 1)
Quarter: 2017Q3

REPORT INFORMATION
  Report Type: Spontaneous
  Country: US (occurrence: US)
  Receive Date: 20170822
  Receipt Date: 20170822
  Transmission Date: 20171127
  Serious: No
  Sender: FDA-Public Use
  Company Number: US-ROCHE-1460636

PATIENT
  Age: 79 Year
  Sex: Female

DRUGS (5)
  1. TYKERB [Concomitant]
     Active Substance: LAPATINIB DITOSYLATE
     Indication: BREAST CANCER METASTATIC
     Dosage: 2 WEEKS
     Route: 065
     Dates: start: 20140729, end: 20140819
  2. HERCEPTIN [Suspect]
     Active Substance: TRASTUZUMAB
     Route: 065
     Dates: start: 20140721, end: 20140721
  3. HERCEPTIN [Suspect]
     Active Substance: TRASTUZUMAB
     Indication: BREAST CANCER
     Dosage: 52 WEEKS
     Route: 065
     Dates: start: 200712
  4. HERCEPTIN [Suspect]
     Active Substance: TRASTUZUMAB
     Route: 065
     Dates: start: 20140729, end: 20140729
  5. XELODA [Suspect]
     Active Substance: CAPECITABINE
     Indication: BREAST CANCER METASTATIC
     Dosage: 2 WEEKS
     Route: 048
     Dates: start: 20140729, end: 20140819

REACTIONS (5)
  - Drug tolerance decreased [Unknown]
  - Confusional state [Unknown]
  - Diarrhoea [Recovered/Resolved]
  - Oedema peripheral [Not Recovered/Not Resolved]
  - Acute prerenal failure [Unknown]

NARRATIVE: CASE EVENT DATE: 20140819
